FAERS Safety Report 4461063-0 (Version None)
Quarter: 2004Q3

REPORT INFORMATION
  Report Type: 
  Country: None (occurrence: None)
  Receive Date: 20040923
  Receipt Date: 20040913
  Transmission Date: 20050211
  Serious: Yes (Death, Hospitalization, Other)
  Sender: FDA-Public Use
  Company Number: US-JNJFOC-20040903513

PATIENT
  Age: 51 Year
  Sex: Male

DRUGS (3)
  1. CYCLOBENZAPRINE HYDROCHLORIDE [Suspect]
     Indication: PAIN
     Dosage: ORAL
     Route: 048
  2. ACETAMINOPHEN/HYDROCODONE (HYDROCODONE W/ACETAMINOPHEN) [Suspect]
     Indication: PAIN
     Dosage: ORAL
     Route: 048
  3. OXYCODONE (OXYCODONE) [Suspect]
     Indication: PAIN
     Dosage: ORAL
     Route: 048

REACTIONS (13)
  - AGITATION [None]
  - ALANINE AMINOTRANSFERASE INCREASED [None]
  - AMMONIA INCREASED [None]
  - ASPARTATE AMINOTRANSFERASE INCREASED [None]
  - BLOOD BILIRUBIN INCREASED [None]
  - DYSARTHRIA [None]
  - HEPATOCELLULAR DAMAGE [None]
  - HYPERHIDROSIS [None]
  - INTERNATIONAL NORMALISED RATIO INCREASED [None]
  - PROTHROMBIN TIME PROLONGED [None]
  - SUDDEN DEATH [None]
  - TACHYCARDIA [None]
  - TACHYPNOEA [None]
